FAERS Safety Report 4744238-2 (Version None)
Quarter: 2005Q3

REPORT INFORMATION
  Report Type: 
  Country: None (occurrence: None)
  Receive Date: 20050811
  Receipt Date: 20050811
  Transmission Date: 20060218
  Serious: Yes (Death)
  Sender: FDA-Public Use
  Company Number: None

PATIENT
  Age: 49 Year
  Sex: Male
  Weight: 90.7194 kg

DRUGS (1)
  1. FENTANYL PATCH   UNKNOWN    UNKNOWN [Suspect]
     Indication: BACK PAIN
     Dosage: ONE PATCH    DAILY   CUTANEOUS
     Route: 003
     Dates: start: 20050310, end: 20050315

REACTIONS (4)
  - DISCOMFORT [None]
  - MEDICATION ERROR [None]
  - OVERDOSE [None]
  - RESPIRATORY DISTRESS [None]
